FAERS Safety Report 25263711 (Version 1)
Quarter: 2025Q2

REPORT INFORMATION
  Report Type: Spontaneous
  Country: FR (occurrence: FR)
  Receive Date: 20250502
  Receipt Date: 20250502
  Transmission Date: 20250717
  Serious: Yes (Hospitalization, Other)
  Sender: CHEPLAPHARM
  Company Number: None

PATIENT
  Age: 55 Year
  Sex: Female
  Weight: 119 kg

DRUGS (17)
  1. QUETIAPINE [Suspect]
     Active Substance: QUETIAPINE
     Indication: Bipolar disorder
     Dosage: DAILY DOSE: 2 DOSAGE FORM
     Route: 048
     Dates: end: 20250328
  2. QUETIAPINE [Suspect]
     Active Substance: QUETIAPINE
     Indication: Bipolar disorder
  3. VALPROATE SODIUM [Suspect]
     Active Substance: VALPROATE SODIUM
     Indication: Bipolar disorder
     Route: 048
     Dates: end: 20250328
  4. LOXAPINE [Suspect]
     Active Substance: LOXAPINE
     Indication: Bipolar disorder
     Dosage: LOXAPINE 25MG/ML: 100 DROPS IN THE EVENING?DAILY DOSE: 100 DROP
     Route: 048
     Dates: end: 20250328
  5. LOXAPINE [Suspect]
     Active Substance: LOXAPINE
     Indication: Bipolar disorder
  6. ZOPICLONE [Suspect]
     Active Substance: ZOPICLONE
     Indication: Insomnia
     Dosage: DAILY DOSE: 75 MILLIGRAM
     Route: 048
  7. AMLODIPINE [Concomitant]
     Active Substance: AMLODIPINE BESYLATE
     Indication: Hypertension
     Dosage: 1 TABLET IN THE MORNING?DAILY DOSE: 10 MILLIGRAM
     Route: 048
  8. METOPROLOL [Concomitant]
     Active Substance: METOPROLOL
     Indication: Hypertension
     Dosage: SCORED TABLET?DAILY DOSE: 2 DOSAGE FORM
     Route: 048
  9. EZETIMIBE [Concomitant]
     Active Substance: EZETIMIBE
     Indication: Dyslipidaemia
     Dosage: DAILY DOSE: 10 MILLIGRAM
     Route: 048
  10. ROSUVASTATIN [Concomitant]
     Active Substance: ROSUVASTATIN
     Indication: Dyslipidaemia
     Dosage: DAILY DOSE: 20 MILLIGRAM
     Route: 048
  11. LANSOPRAZOLE [Concomitant]
     Active Substance: LANSOPRAZOLE
     Indication: Gastrooesophageal reflux disease
     Route: 048
  12. SODIUM BICARBONATE [Concomitant]
     Active Substance: SODIUM BICARBONATE
     Dosage: DAILY DOSE: 2 GRAM
     Route: 048
  13. FOLIC ACID [Concomitant]
     Active Substance: FOLIC ACID
     Dosage: DAILY DOSE: 5 MILLIGRAM
     Route: 048
  14. TOUJEO [Concomitant]
     Active Substance: INSULIN GLARGINE
  15. Novorapid/FlexPen [Concomitant]
  16. POLYETHYLENE GLYCOLS [Concomitant]
     Active Substance: POLYETHYLENE GLYCOLS
  17. CHOLECALCIFEROL [Concomitant]
     Active Substance: CHOLECALCIFEROL
     Dosage: 1 CAPSULE IN THE EVENING?DAILY DOSE: 1 DOSAGE FORM

REACTIONS (8)
  - Respiratory failure [Recovered/Resolved]
  - Somnolence [Recovered/Resolved]
  - Cardiac failure [Unknown]
  - Renal impairment [Unknown]
  - Hallucination [Unknown]
  - Arthralgia [Unknown]
  - Influenza [Unknown]
  - Escherichia infection [Unknown]

NARRATIVE: CASE EVENT DATE: 20250328
